FAERS Safety Report 8454941-9 (Version None)
Quarter: 2012Q2

REPORT INFORMATION
  Report Type: 
  Country: None (occurrence: None)
  Receive Date: 20120621
  Receipt Date: 20120615
  Transmission Date: 20120825
  Serious: No
  Sender: FDA-Public Use
  Company Number: US-PFIZER INC-2012125663

PATIENT
  Sex: Female
  Weight: 89.342 kg

DRUGS (17)
  1. CIPROFLOXACIN HYDROCHLORIDE [Concomitant]
     Dosage: UNK
  2. SEROQUEL [Concomitant]
  3. CALCIUM 600 + D [Concomitant]
     Dosage: UNK
  4. DIPHENOXYLATE HCL AND ATROPINE SULFATE [Concomitant]
     Dosage: UNK
  5. OMEPRAZOLE [Concomitant]
  6. SUTENT [Suspect]
     Indication: RENAL CANCER
     Dosage: 50 MG, UNK
     Dates: start: 20110131
  7. ALENDRONATE SODIUM [Concomitant]
     Dosage: UNK
  8. ALPRAZOLAM [Concomitant]
     Dosage: UNK
  9. DILTIAZEM HYDROCHLORIDE [Concomitant]
     Dosage: UNK
  10. PROCHLORPERAZINE MALEATE [Concomitant]
     Dosage: UNK
  11. SUTENT [Suspect]
     Dosage: 12.5 MG, 1X/DAY
     Dates: start: 20110712, end: 20120401
  12. HYDROCODONE BITARTRATE + ACETAMINOPHEN [Concomitant]
     Dosage: UNK
  13. SERTRALINE HYDROCHLORIDE [Concomitant]
  14. SUTENT [Suspect]
     Indication: METASTATIC RENAL CELL CARCINOMA
     Dosage: 25 MG, 1X/DAY
     Dates: start: 20110401
  15. DIOVAN [Concomitant]
     Dosage: UNK
  16. LOMOTIL [Concomitant]
     Dosage: UNK
  17. ZOFRAN [Concomitant]
     Dosage: UNK

REACTIONS (7)
  - PALMAR-PLANTAR ERYTHRODYSAESTHESIA SYNDROME [None]
  - FATIGUE [None]
  - DIARRHOEA [None]
  - DEHYDRATION [None]
  - WEIGHT DECREASED [None]
  - NAUSEA [None]
  - VOMITING [None]
